FAERS Safety Report 11167080 (Version 1)
Quarter: 2015Q2

REPORT INFORMATION
  Report Type: Spontaneous
  Country: FR (occurrence: None)
  Receive Date: 20150603
  Receipt Date: 20150603
  Transmission Date: 20150821
  Serious: No
  Sender: FDA-Public Use
  Company Number: 2014DEPFR00603

PATIENT
  Sex: Female

DRUGS (1)
  1. DEPOCYT(E) (CYTARABINE) LIPOSOME INJECTABLE SUSPENSION [Suspect]
     Active Substance: CYTARABINE
     Indication: METASTASES TO MENINGES
     Dates: start: 2014

REACTIONS (1)
  - Off label use [None]

NARRATIVE: CASE EVENT DATE: 2014
